FAERS Safety Report 6897057-5 (Version None)
Quarter: 2010Q3

REPORT INFORMATION
  Report Type: 
  Country: None (occurrence: None)
  Receive Date: 20100729
  Receipt Date: 20100723
  Transmission Date: 20110219
  Serious: Yes (Hospitalization)
  Sender: FDA-Public Use
  Company Number: 2010SP031570

PATIENT
  Age: 57 Year
  Sex: Male
  Weight: 71.1 kg

DRUGS (5)
  1. MIRTAZAPINE [Suspect]
     Indication: DEPRESSION
     Dosage: 45 MG;QD;PO, 30 MG;QD;PO, 15 MG;QD;PO,
     Route: 048
     Dates: end: 20100324
  2. MIRTAZAPINE [Suspect]
     Indication: DEPRESSION
     Dosage: 45 MG;QD;PO, 30 MG;QD;PO, 15 MG;QD;PO,
     Route: 048
     Dates: start: 20100325, end: 20100419
  3. MIRTAZAPINE [Suspect]
     Indication: DEPRESSION
     Dosage: 45 MG;QD;PO, 30 MG;QD;PO, 15 MG;QD;PO,
     Route: 048
     Dates: start: 20100420, end: 20100426
  4. VENLAFAXINE HCL [Suspect]
     Indication: DEPRESSION
     Dosage: 75 MG;QD;PO, 10 MG;QD;PO
     Route: 048
     Dates: start: 20100316, end: 20100325
  5. VENLAFAXINE HCL [Suspect]
     Indication: DEPRESSION
     Dosage: 75 MG;QD;PO, 10 MG;QD;PO
     Route: 048
     Dates: start: 20100326, end: 20100327

REACTIONS (6)
  - AMYOTROPHY [None]
  - DELUSION [None]
  - HEADACHE [None]
  - NERVOUS SYSTEM DISORDER [None]
  - ORGAN FAILURE [None]
  - UNEVALUABLE EVENT [None]
